FAERS Safety Report 16476727 (Version 1)
Quarter: 2019Q2

REPORT INFORMATION
  Report Type: Spontaneous
  Country: ES (occurrence: ES)
  Receive Date: 20190626
  Receipt Date: 20190626
  Transmission Date: 20190711
  Serious: Yes (Other)
  Sender: FDA-Public Use
  Company Number: ES-AMGEN-ESPSP2019097929

PATIENT
  Age: 59 Year
  Sex: Female
  Weight: 65 kg

DRUGS (11)
  1. ADALIMUMAB [Suspect]
     Active Substance: ADALIMUMAB
     Indication: RHEUMATOID ARTHRITIS
     Dosage: 40 MILLIGRAM, Q15DAY
     Route: 058
     Dates: start: 20190123, end: 20190327
  2. LEDERFOLIN [Concomitant]
     Active Substance: LEUCOVORIN CALCIUM
     Dosage: 15 MILLIGRAM
     Route: 048
  3. CYMBALTA [Concomitant]
     Active Substance: DULOXETINE HYDROCHLORIDE
     Dosage: 60 MILLIGRAM
     Route: 048
  4. METOJECT [Concomitant]
     Active Substance: METHOTREXATE SODIUM
     Dosage: 25 MILLIGRAM PER MILLILITRE
     Route: 058
  5. OMEPRAZOLE. [Concomitant]
     Active Substance: OMEPRAZOLE
     Dosage: 20 MILLIGRAM
     Route: 048
  6. ACTONEL [Concomitant]
     Active Substance: RISEDRONATE SODIUM
     Dosage: 35 MILLIGRAM
     Route: 048
  7. VIMOVO [Concomitant]
     Active Substance: ESOMEPRAZOLE MAGNESIUM\NAPROXEN
     Dosage: 500MG/20MG
     Route: 048
  8. ATOZET [Concomitant]
     Active Substance: ATORVASTATIN CALCIUM\EZETIMIBE
     Dosage: 10MG/80MG
     Route: 048
  9. CARBOCAL D [Concomitant]
     Active Substance: CALCIUM\VITAMIN D
     Route: 048
  10. DISGREN [ACETYLSALICYLIC ACID] [Concomitant]
     Dosage: 300 MILLIGRAM
     Route: 048
  11. BENICAR [Concomitant]
     Active Substance: OLMESARTAN MEDOXOMIL
     Dosage: 10 MILLIGRAM
     Route: 048

REACTIONS (2)
  - Abdominal discomfort [Recovered/Resolved]
  - Nausea [Recovered/Resolved]

NARRATIVE: CASE EVENT DATE: 20190123
